FAERS Safety Report 7748404-3 (Version None)
Quarter: 2011Q3

REPORT INFORMATION
  Report Type: 
  Country: None (occurrence: None)
  Receive Date: 20110913
  Receipt Date: 20110909
  Transmission Date: 20111222
  Serious: Yes (Death, Other)
  Sender: FDA-Public Use
  Company Number: DK-BRISTOL-MYERS SQUIBB COMPANY-16046377

PATIENT

DRUGS (2)
  1. ALCOHOL [Suspect]
  2. ABILIFY [Suspect]

REACTIONS (2)
  - DEATH [None]
  - ALCOHOL ABUSE [None]
